FAERS Safety Report 18943530 (Version 1)
Quarter: 2021Q1

REPORT INFORMATION
  Report Type: Spontaneous
  Country: DE (occurrence: DE)
  Receive Date: 20210226
  Receipt Date: 20210226
  Transmission Date: 20210420
  Serious: Yes (Congenital Anomaly)
  Sender: FDA-Public Use
  Company Number: DE-MICRO LABS LIMITED-ML2021-00554

PATIENT

DRUGS (1)
  1. LOSARTAN. [Suspect]
     Active Substance: LOSARTAN
     Indication: HYPERTENSION
     Route: 064

REACTIONS (3)
  - Haematuria [Unknown]
  - Alport^s syndrome [Unknown]
  - Foetal exposure during pregnancy [Unknown]
